FAERS Safety Report 10066644 (Version 2)
Quarter: 2014Q3

REPORT INFORMATION
  Report Type: Spontaneous
  Country: US (occurrence: US)
  Receive Date: 20140408
  Receipt Date: 20140703
  Transmission Date: 20150326
  Serious: Yes (Hospitalization, Other)
  Sender: FDA-Public Use
  Company Number: US-GILEAD-2014-0099055

PATIENT
  Sex: Female

DRUGS (5)
  1. LETAIRIS [Suspect]
     Active Substance: AMBRISENTAN
     Indication: PULMONARY EMBOLISM
  2. VENTAVIS [Concomitant]
     Active Substance: ILOPROST
  3. LETAIRIS [Suspect]
     Active Substance: AMBRISENTAN
     Indication: PULMONARY HYPERTENSION
     Dosage: 10 MG, QD
     Route: 065
     Dates: start: 20110628
  4. LETAIRIS [Suspect]
     Active Substance: AMBRISENTAN
     Indication: EMBOLISM
  5. SILDENAFIL [Concomitant]
     Active Substance: SILDENAFIL

REACTIONS (1)
  - Pneumonia [Unknown]
